FAERS Safety Report 9049757 (Version 2)
Quarter: 2013Q1

REPORT INFORMATION
  Report Type: Report from Study
  Country: None (occurrence: US)
  Receive Date: 20130205
  Receipt Date: 20130214
  Transmission Date: 20140127
  Serious: Yes (Other)
  Sender: FDA-Public Use
  Company Number: US-ABBOTT-13P-163-1044622-00

PATIENT
  Sex: Female
  Weight: 59.47 kg

DRUGS (2)
  1. HUMIRA PEN [Suspect]
     Indication: CROHN^S DISEASE
     Dosage: LOADING DOSE
     Dates: start: 2007, end: 201110
  2. PREDNISONE [Concomitant]
     Indication: CROHN^S DISEASE
     Dosage: TAPERED TO 10MG, THEN INCREASED TO 20MG

REACTIONS (3)
  - Intestinal obstruction [Recovered/Resolved]
  - Hernia [Recovered/Resolved]
  - Crohn^s disease [Not Recovered/Not Resolved]
